FAERS Safety Report 4591117-X (Version None)
Quarter: 2005Q1

REPORT INFORMATION
  Report Type: 
  Country: None (occurrence: None)
  Receive Date: 20050222
  Receipt Date: 20050222
  Transmission Date: 20050727
  Serious: Yes (Death)
  Sender: FDA-Public Use
  Company Number: None

PATIENT
  Sex: Male
  Weight: 86 kg

DRUGS (2)
  1. PACLITAXEL [Suspect]
     Dosage: 200 MG/M2 IV OVER 3 HR ON DAY 1, EVERY 21 DAYS
     Route: 042
     Dates: start: 20050105
  2. CARBOPLATIN [Suspect]
     Dosage: 6 AUC IV OVER 30 MIN ON DAY 1, EVERY 21 DAYS
     Route: 042

REACTIONS (6)
  - COUGH [None]
  - DIZZINESS [None]
  - DYSPNOEA [None]
  - NAUSEA [None]
  - NOCTURNAL DYSPNOEA [None]
  - SUDDEN DEATH [None]
